FAERS Safety Report 18578985 (Version 1)
Quarter: 2020Q4

REPORT INFORMATION
  Report Type: Spontaneous
  Country: US (occurrence: US)
  Receive Date: 20201202
  Receipt Date: 20201202
  Transmission Date: 20210114
  Serious: Yes (Other)
  Sender: FDA-Public Use
  Company Number: None

PATIENT
  Age: 83 Year
  Sex: Male
  Weight: 59.4 kg

DRUGS (22)
  1. ATROVENT [Concomitant]
     Active Substance: IPRATROPIUM BROMIDE
     Dates: end: 20201128
  2. CEFTRIAXONE. [Concomitant]
     Active Substance: CEFTRIAXONE
     Dates: end: 20201123
  3. FLUCONAZOLE. [Concomitant]
     Active Substance: FLUCONAZOLE
     Dates: start: 20200921, end: 20201120
  4. HALOPERIDOL LACTATE. [Concomitant]
     Active Substance: HALOPERIDOL LACTATE
     Dates: end: 20201021
  5. CASPOFUNGIN [Concomitant]
     Active Substance: CASPOFUNGIN
     Dates: end: 20201026
  6. MUCOMYST [Concomitant]
     Active Substance: ACETYLCYSTEINE
     Dates: end: 20201105
  7. ATORVASTATIN [Concomitant]
     Active Substance: ATORVASTATIN
     Dates: start: 20200921, end: 20201128
  8. INSULIN [Concomitant]
     Active Substance: INSULIN NOS
     Dates: start: 20200921, end: 20201128
  9. ACYCLOVIR. [Concomitant]
     Active Substance: ACYCLOVIR
     Dates: end: 20201128
  10. FUROSEMIDE. [Concomitant]
     Active Substance: FUROSEMIDE
     Dates: start: 20200921, end: 20201007
  11. LOPERAMIDE [Concomitant]
     Active Substance: LOPERAMIDE
     Dates: end: 20201117
  12. METOPROLOL TARTRATE. [Concomitant]
     Active Substance: METOPROLOL TARTRATE
     Dates: end: 20201128
  13. DIGOXIN. [Concomitant]
     Active Substance: DIGOXIN
     Dates: start: 20200921, end: 20201128
  14. FAMOTIDINE. [Concomitant]
     Active Substance: FAMOTIDINE
     Dates: end: 20201128
  15. KEPPRA [Concomitant]
     Active Substance: LEVETIRACETAM
     Dates: end: 20201015
  16. MAGNESIUM SULFATE. [Concomitant]
     Active Substance: MAGNESIUM SULFATE
     Dates: start: 20200921, end: 20201117
  17. BREXUCABTAGENE AUTOLEUCEL. [Suspect]
     Active Substance: BREXUCABTAGENE AUTOLEUCEL
     Indication: MANTLE CELL LYMPHOMA
     Dosage: ?          OTHER FREQUENCY:ONCE;?
     Route: 041
     Dates: start: 20200921, end: 20200921
  18. ACETAMINOPHEN. [Concomitant]
     Active Substance: ACETAMINOPHEN
     Dates: start: 20200921, end: 20201127
  19. ALBUTEROL. [Concomitant]
     Active Substance: ALBUTEROL
     Dates: end: 20201128
  20. CIPROFLOXACIN. [Concomitant]
     Active Substance: CIPROFLOXACIN
     Dates: start: 20200921, end: 20200922
  21. POTASSIUM CHLORIDE. [Concomitant]
     Active Substance: POTASSIUM CHLORIDE
     Dates: end: 20201105
  22. ENOXAPARIN [Concomitant]
     Active Substance: ENOXAPARIN
     Dates: end: 20201128

REACTIONS (2)
  - Neurotoxicity [None]
  - Cytokine release syndrome [None]

NARRATIVE: CASE EVENT DATE: 20200923
